FAERS Safety Report 9866272 (Version 2)
Quarter: 2014Q1

REPORT INFORMATION
  Report Type: Spontaneous
  Country: US (occurrence: US)
  Receive Date: 20140203
  Receipt Date: 20140203
  Transmission Date: 20141002
  Serious: No
  Sender: FDA-Public Use
  Company Number: US-ALLERGAN-1318184US

PATIENT
  Age: 85 Year
  Sex: Female

DRUGS (3)
  1. RESTASIS [Suspect]
     Indication: DRY EYE
     Dosage: 2 GTT, BID
     Route: 047
  2. AZASITE [Concomitant]
     Indication: EYE INFECTION
     Route: 047
  3. OVER-THE-COUNTER NON PRESERVED EYE DROPS NOS [Concomitant]
     Indication: DRY EYE
     Dosage: UNK

REACTIONS (2)
  - Vision blurred [Unknown]
  - Lacrimation increased [Unknown]
